FAERS Safety Report 9838931 (Version 2)
Quarter: 2014Q1

REPORT INFORMATION
  Report Type: Spontaneous
  Country: JP (occurrence: JP)
  Receive Date: 20140123
  Receipt Date: 20140203
  Transmission Date: 20141002
  Serious: Yes (Death, Other)
  Sender: FDA-Public Use
  Company Number: JP-JNJFOC-20140109607

PATIENT
  Age: 60 Year
  Sex: Male

DRUGS (1)
  1. DUROTEP MT [Suspect]
     Indication: PAIN
     Route: 062
     Dates: end: 20140115

REACTIONS (2)
  - Multi-organ failure [Fatal]
  - Orthopaedic procedure [Unknown]
